FAERS Safety Report 7907465-9 (Version None)
Quarter: 2011Q4

REPORT INFORMATION
  Report Type: 
  Country: None (occurrence: None)
  Receive Date: 20111109
  Receipt Date: 20111109
  Transmission Date: 20120403
  Serious: Yes (Hospitalization)
  Sender: FDA-Public Use
  Company Number: None

PATIENT
  Sex: Male
  Weight: 112 kg

DRUGS (6)
  1. CEFEPIME [Concomitant]
  2. LEVAQUIN [Concomitant]
  3. FENTANYL [Concomitant]
  4. OXYCODONE HCL [Concomitant]
  5. MORPHINE SULFATE [Concomitant]
  6. CISPLATIN [Suspect]
     Dosage: 200 MG
     Dates: end: 20081107

REACTIONS (9)
  - PYREXIA [None]
  - LARYNGEAL CANCER [None]
  - CHEST X-RAY ABNORMAL [None]
  - DYSPHAGIA [None]
  - ODYNOPHAGIA [None]
  - NEUTROPHIL COUNT DECREASED [None]
  - COUGH [None]
  - WHITE BLOOD CELL COUNT DECREASED [None]
  - ASPIRATION [None]
